FAERS Safety Report 5027979-1 (Version None)
Quarter: 2006Q2

REPORT INFORMATION
  Report Type: 
  Country: None (occurrence: None)
  Receive Date: 20060612
  Receipt Date: 20060525
  Transmission Date: 20061013
  Serious: Yes (Disabling)
  Sender: FDA-Public Use
  Company Number: S06-UKI-01761-01

PATIENT
  Age: 82 Year
  Sex: Male

DRUGS (6)
  1. MEMANTINE HCL [Suspect]
     Indication: DEMENTIA ALZHEIMER'S TYPE
     Dosage: 20 MG QD PO
     Route: 048
     Dates: start: 20021201, end: 20051215
  2. THIAMINE [Concomitant]
  3. CELEBREX [Concomitant]
  4. DETRUSITOL XL [Concomitant]
  5. AMOXICILLIN [Concomitant]
  6. NIROLEX [Concomitant]

REACTIONS (4)
  - BLINDNESS [None]
  - CEREBROVASCULAR ACCIDENT [None]
  - GENERAL PHYSICAL HEALTH DETERIORATION [None]
  - OPHTHALMOPLEGIA [None]
